FAERS Safety Report 5474066-4 (Version None)
Quarter: 2007Q4

REPORT INFORMATION
  Report Type: 
  Country: None (occurrence: None)
  Receive Date: 20071002
  Receipt Date: 20070925
  Transmission Date: 20080405
  Serious: Yes (Life-Threatening, Hospitalization)
  Sender: FDA-Public Use
  Company Number: PHHO2007FR15720

PATIENT
  Age: 57 Year
  Sex: Female
  Weight: 43 kg

DRUGS (10)
  1. RAD [Suspect]
     Indication: HEART TRANSPLANT
     Dosage: 5 MG/DAILY
     Route: 048
     Dates: start: 20070714, end: 20070917
  2. RAD [Suspect]
     Dosage: 2.5 MG/DAILY
     Route: 048
     Dates: start: 20070918, end: 20070918
  3. RAD [Suspect]
     Dosage: 2.0 MG/DAILY
     Route: 048
     Dates: start: 20070919, end: 20070919
  4. RAD [Suspect]
     Dosage: 4 MG/DAILY
     Route: 048
     Dates: start: 20070920, end: 20070920
  5. RAD [Suspect]
     Dosage: 4.5 MG/DAILY
     Route: 048
     Dates: start: 20070921, end: 20070921
  6. RAD [Suspect]
     Dosage: 5 MG/DAILY
     Route: 048
     Dates: start: 20070922
  7. ROVALCYTE [Concomitant]
  8. RANIPLEX [Concomitant]
  9. BACTRIM [Concomitant]
  10. NEORAL [Suspect]
     Indication: HEART TRANSPLANT
     Dosage: 100 MG, BID

REACTIONS (1)
  - LEUKOPENIA [None]
